FAERS Safety Report 9831489 (Version 1)
Quarter: 2014Q1

REPORT INFORMATION
  Report Type: Spontaneous
  Country: US (occurrence: US)
  Receive Date: 20140121
  Receipt Date: 20140121
  Transmission Date: 20141002
  Serious: No
  Sender: FDA-Public Use
  Company Number: US-JNJFOC-20140102678

PATIENT
  Age: 47 Year
  Sex: Male

DRUGS (10)
  1. SANDOZ FENTANYL TRANSDERMAL SYSTEM [Suspect]
     Indication: PROCEDURAL PAIN
     Route: 062
     Dates: start: 20131217
  2. MALLINCKRODT FENTANYL PATCHES [Suspect]
     Indication: PROCEDURAL PAIN
     Route: 062
     Dates: start: 20131217
  3. MORPHINE [Concomitant]
     Indication: PAIN
     Route: 048
     Dates: start: 20131106
  4. LEXAPRO [Concomitant]
     Indication: ANXIETY
     Route: 048
  5. ARIXTRA [Concomitant]
     Indication: PLATELET FUNCTION TEST ABNORMAL
     Dosage: AT NIGHT
     Route: 058
  6. SOLIRIS [Concomitant]
     Indication: IMMUNOSUPPRESSANT DRUG THERAPY
     Dosage: 2 WEEKS
     Route: 058
  7. LEVOTHYROXINE [Concomitant]
     Indication: HYPOTHYROIDISM
     Route: 048
  8. DOCUSATE [Concomitant]
     Indication: CONSTIPATION
     Route: 048
  9. MIRALAX [Concomitant]
     Indication: CONSTIPATION
     Dosage: TWO TIMES A DAY
     Route: 065
  10. FOLIC ACID [Concomitant]
     Indication: PRODUCT USED FOR UNKNOWN INDICATION
     Route: 048

REACTIONS (7)
  - Wrong technique in drug usage process [Recovered/Resolved]
  - Wrong technique in drug usage process [Recovered/Resolved]
  - Drug ineffective [Recovered/Resolved]
  - Product quality issue [Unknown]
  - Product quality issue [Unknown]
  - Product quality issue [Unknown]
  - Off label use [Unknown]
